FAERS Safety Report 5176722-4 (Version None)
Quarter: 2006Q4

REPORT INFORMATION
  Report Type: 
  Country: None (occurrence: None)
  Receive Date: 20061218
  Receipt Date: 20061207
  Transmission Date: 20070319
  Serious: Yes (Other)
  Sender: FDA-Public Use
  Company Number: FR-AVENTIS-200614319FR

PATIENT
  Age: 32 Year
  Sex: Female

DRUGS (9)
  1. FLAGYL [Suspect]
     Indication: VAGINAL FISTULA
     Route: 048
     Dates: start: 20060201, end: 20060801
  2. FLAGYL [Suspect]
     Route: 048
     Dates: start: 20061101, end: 20061101
  3. FLAGYL [Suspect]
     Route: 048
     Dates: start: 20061101
  4. KETOPROFEN [Suspect]
     Route: 048
     Dates: start: 20060201, end: 20060801
  5. CORTANCYL [Suspect]
     Indication: CROHN'S DISEASE
     Route: 048
     Dates: start: 20061101
  6. CIFLOX                             /00697201/ [Concomitant]
     Dates: start: 20060201, end: 20060801
  7. AUGMENTIN [Concomitant]
     Dates: start: 20060201, end: 20060801
  8. KETOPROFEN [Concomitant]
     Dates: start: 20060201, end: 20060801
  9. CORTANCYL [Concomitant]
     Route: 048
     Dates: start: 20061101

REACTIONS (4)
  - CONFUSIONAL STATE [None]
  - HEADACHE [None]
  - MEMORY IMPAIRMENT [None]
  - VERTIGO [None]
